FAERS Safety Report 8621897-5 (Version None)
Quarter: 2012Q3

REPORT INFORMATION
  Report Type: 
  Country: None (occurrence: None)
  Receive Date: 20120822
  Receipt Date: 20120822
  Transmission Date: 20120928
  Serious: Yes (Hospitalization)
  Sender: FDA-Public Use
  Company Number: None

PATIENT
  Sex: Male
  Weight: 94 kg

DRUGS (7)
  1. DOXORUBICIN HYDROCHLORIDE [Suspect]
     Dosage: 152 MG
  2. CYCLOPHOSPHAMIDE [Suspect]
     Dosage: 2780 MG
  3. ETOPOSIDE [Suspect]
     Dosage: 720 MG
  4. PREDNISONE [Suspect]
     Dosage: 1300 MG
  5. FLUORINE-18 2-FLUOROU-2 DEOXYRY-D-GLUCOSE (18F-FDG) [Suspect]
     Dosage: 12 MG
  6. RITUXIMAB [Suspect]
     Dosage: 800 MG
  7. VINCRISTINE SULFATE [Suspect]
     Dosage: 3.6 MG

REACTIONS (5)
  - NEUTROPENIA [None]
  - TACHYCARDIA [None]
  - PANCYTOPENIA [None]
  - PYREXIA [None]
  - CLOSTRIDIUM DIFFICILE COLITIS [None]
